FAERS Safety Report 5086613-5 (Version None)
Quarter: 2006Q3

REPORT INFORMATION
  Report Type: 
  Country: None (occurrence: None)
  Receive Date: 20060703
  Receipt Date: 20050919
  Transmission Date: 20061208
  Serious: No
  Sender: FDA-Public Use
  Company Number: 2005S1009212

PATIENT
  Age: 58 Year
  Sex: Male

DRUGS (15)
  1. CLOZAPINE [Suspect]
     Indication: SCHIZOPHRENIA
     Dosage: 200 MG;TID;PO
     Route: 048
     Dates: start: 20010401
  2. OXYBUTYNIN HYDROCHLORIDE [Concomitant]
  3. FENOFIBRATE [Concomitant]
  4. SIMVASTATIN [Concomitant]
  5. GABAPENTIN [Concomitant]
  6. METFORMIN HYDROCHLORIDE [Concomitant]
  7. PIOGLITAZONE HCL [Concomitant]
  8. CLONAZEPAM [Concomitant]
  9. PROMETHAZINE HCL [Concomitant]
  10. ESCITALOPRAM OXALATE [Concomitant]
  11. QUETIAPINE FUMARATE [Concomitant]
  12. FAMOTIDINE [Concomitant]
  13. BENZTROPINE MESYLATE [Concomitant]
  14. INSULIN HUMAN/INSULIN HUMAN INJECTION, ISOPHANE [Concomitant]
  15. ASCORBIC ACID/PYRIDOXINE HYDROCHLORIDE/FOLIC ACID/RIBOFLAVIN/NICOTINAM [Concomitant]

REACTIONS (1)
  - GRANULOCYTOPENIA [None]
